FAERS Safety Report 12839308 (Version 1)
Quarter: 2016Q4

REPORT INFORMATION
  Report Type: Spontaneous
  Country: US (occurrence: US)
  Receive Date: 20161012
  Receipt Date: 20161012
  Transmission Date: 20170207
  Serious: No
  Sender: FDA-Public Use
  Company Number: US-PFIZER INC-2016472004

PATIENT
  Age: 73 Year
  Sex: Female
  Weight: 64.86 kg

DRUGS (2)
  1. LYRICA [Suspect]
     Active Substance: PREGABALIN
     Indication: NEUROPATHY PERIPHERAL
     Dosage: 100 MG, 2X/DAY
     Dates: start: 20160915
  2. LYRICA [Suspect]
     Active Substance: PREGABALIN
     Dosage: 250 MG, DAILY

REACTIONS (2)
  - Vision blurred [Not Recovered/Not Resolved]
  - Drug ineffective [Unknown]
